FAERS Safety Report 10065565 (Version 1)
Quarter: 2014Q2

REPORT INFORMATION
  Report Type: Spontaneous
  Country: US (occurrence: US)
  Receive Date: 20140408
  Receipt Date: 20140408
  Transmission Date: 20141212
  Serious: No
  Sender: FDA-Public Use
  Company Number: US-BAYER-2014-044645

PATIENT
  Sex: Female

DRUGS (1)
  1. ALEVE CAPLET [Suspect]
     Indication: ARTHRALGIA
     Route: 048

REACTIONS (4)
  - Feeling abnormal [None]
  - Therapeutic response changed [None]
  - Nausea [None]
  - Abdominal distension [None]
